FAERS Safety Report 10693030 (Version 1)
Quarter: 2015Q1

REPORT INFORMATION
  Report Type: Spontaneous
  Country: US (occurrence: None)
  Receive Date: 20150105
  Receipt Date: 20150105
  Transmission Date: 20150720
  Serious: Yes (Other)
  Sender: FDA-Public Use
  Company Number: None

PATIENT
  Age: 16 Year
  Sex: Male
  Weight: 54 kg

DRUGS (3)
  1. GUANFACINE. [Suspect]
     Active Substance: GUANFACINE
     Indication: ATTENTION DEFICIT/HYPERACTIVITY DISORDER
     Dosage: 1 MG, AM, ORALLY
     Route: 048
     Dates: start: 20141216
  2. GUANFACINE. [Suspect]
     Active Substance: GUANFACINE
     Dosage: 3 MG DAILY
     Dates: start: 20141216
  3. GUANFACINE. [Suspect]
     Active Substance: GUANFACINE
     Indication: AUTISM
     Dosage: 2 MG, PM, ORALLY
     Route: 048

REACTIONS (7)
  - Feeling abnormal [None]
  - Sluggishness [None]
  - Somnolence [None]
  - Depressed mood [None]
  - Decreased appetite [None]
  - Product substitution issue [None]
  - Fatigue [None]

NARRATIVE: CASE EVENT DATE: 20150102
